FAERS Safety Report 5452543-X (Version None)
Quarter: 2007Q3

REPORT INFORMATION
  Report Type: 
  Country: None (occurrence: None)
  Receive Date: 20070914
  Receipt Date: 20070911
  Transmission Date: 20080115
  Serious: Yes (Death, Hospitalization)
  Sender: FDA-Public Use
  Company Number: US-BAYER-200710035BWH

PATIENT
  Age: 61 Year
  Sex: Male
  Weight: 60 kg

DRUGS (15)
  1. SORAFENIB [Suspect]
     Indication: NON-SMALL CELL LUNG CANCER METASTATIC
     Dosage: TOTAL DAILY DOSE: 800 MG  UNIT DOSE: 200 MG
     Route: 048
     Dates: start: 20061219, end: 20061230
  2. CARBOPLATIN [Suspect]
     Indication: NON-SMALL CELL LUNG CANCER METASTATIC
     Route: 042
     Dates: start: 20061218, end: 20061218
  3. TAXOL [Suspect]
     Indication: NON-SMALL CELL LUNG CANCER METASTATIC
     Route: 042
     Dates: start: 20061218, end: 20061218
  4. COMBIVENT [Concomitant]
     Indication: DYSPNOEA
     Route: 055
     Dates: start: 20060701, end: 20061231
  5. NPH INSULIN [Concomitant]
     Indication: DIABETES MELLITUS
     Route: 058
     Dates: start: 20041201, end: 20070106
  6. OXYCODONE HCL EXTENDED-RELEASE [Concomitant]
     Indication: PAIN
     Route: 048
     Dates: start: 20061101, end: 20061231
  7. HYDROCODONE [Concomitant]
     Indication: PAIN
     Route: 048
     Dates: start: 20061212, end: 20070106
  8. AMBIEN [Concomitant]
     Indication: INSOMNIA
     Route: 048
     Dates: start: 20061201, end: 20070106
  9. OXYGEN [Concomitant]
     Indication: HYPOXIA
     Route: 055
     Dates: start: 20061223, end: 20070103
  10. LASIX [Concomitant]
     Indication: OEDEMA PERIPHERAL
     Route: 048
     Dates: start: 20061230, end: 20061231
  11. MICRO-K [Concomitant]
     Indication: OEDEMA PERIPHERAL
     Route: 048
     Dates: start: 20061230, end: 20061231
  12. MEDROL [Concomitant]
     Indication: RASH
     Route: 048
     Dates: start: 20061230, end: 20061231
  13. DIFLUCAN [Concomitant]
     Indication: RASH
     Route: 042
     Dates: start: 20061231, end: 20070103
  14. NOVOLIN 70/30 [Concomitant]
     Dosage: TOTAL DAILY DOSE: 30 U
     Route: 058
  15. ACETAMINOPHEN AND HYDROCODONE BITARTRATE [Concomitant]
     Indication: PAIN
     Dosage: AS USED: 7.5/500 MG
     Route: 048

REACTIONS (17)
  - ABASIA [None]
  - BLOOD GLUCOSE INCREASED [None]
  - BLOOD PRESSURE DIASTOLIC DECREASED [None]
  - BLOOD UREA INCREASED [None]
  - ERYTHEMA [None]
  - FEBRILE NEUTROPENIA [None]
  - FUNGAL RASH [None]
  - HERNIA [None]
  - HYPERTENSION [None]
  - OEDEMA PERIPHERAL [None]
  - PAIN IN EXTREMITY [None]
  - PLEURAL EFFUSION [None]
  - PNEUMONITIS [None]
  - RASH [None]
  - RESPIRATORY FAILURE [None]
  - SINUS TACHYCARDIA [None]
  - WHITE BLOOD CELL COUNT DECREASED [None]
